FAERS Safety Report 15967997 (Version 1)
Quarter: 2019Q1

REPORT INFORMATION
  Report Type: Spontaneous
  Country: US (occurrence: US)
  Receive Date: 20190215
  Receipt Date: 20190215
  Transmission Date: 20190418
  Serious: Yes (Other)
  Sender: FDA-Public Use
  Company Number: PHEH2019US006750

PATIENT
  Age: 74 Year
  Sex: Male

DRUGS (1)
  1. TASIGNA [Suspect]
     Active Substance: NILOTINIB
     Indication: CHRONIC MYELOID LEUKAEMIA
     Dosage: 2 DF, BID
     Route: 048

REACTIONS (34)
  - Diverticulitis [Unknown]
  - Back pain [Unknown]
  - Pneumonia [Unknown]
  - Cholelithiasis [Unknown]
  - Sinus tachycardia [Unknown]
  - Aphasia [Unknown]
  - Cerebrovascular accident [Unknown]
  - Osteoarthritis [Unknown]
  - Hypercalcaemia [Unknown]
  - Umbilical hernia [Unknown]
  - Vitamin D deficiency [Unknown]
  - Haematuria [Unknown]
  - Bronchitis [Unknown]
  - Hyperparathyroidism [Unknown]
  - Benign prostatic hyperplasia [Unknown]
  - Bursitis [Unknown]
  - Gout [Unknown]
  - Facial paralysis [Unknown]
  - Thrombophlebitis [Unknown]
  - Lumbar spinal stenosis [Unknown]
  - Dysarthria [Unknown]
  - Hypertension [Unknown]
  - Dyspnoea [Unknown]
  - Hemiparesis [Unknown]
  - Abdominal hernia [Unknown]
  - Osteoporosis [Unknown]
  - Sensory loss [Unknown]
  - Dyslipidaemia [Unknown]
  - Vision blurred [Unknown]
  - Cough [Unknown]
  - Pulmonary embolism [Unknown]
  - Folliculitis [Unknown]
  - Chronic kidney disease [Unknown]
  - Chest pain [Unknown]

NARRATIVE: CASE EVENT DATE: 201702
